FAERS Safety Report 8425621-0 (Version None)
Quarter: 2012Q2

REPORT INFORMATION
  Report Type: 
  Country: None (occurrence: None)
  Receive Date: 20120611
  Receipt Date: 20120604
  Transmission Date: 20120825
  Serious: Yes (Death, Other)
  Sender: FDA-Public Use
  Company Number: PHHY2012CA048439

PATIENT
  Sex: Male

DRUGS (2)
  1. WARFARIN [Interacting]
  2. GLEEVEC [Suspect]
     Dosage: 400 MG, UNK

REACTIONS (3)
  - MYOCARDIAL INFARCTION [None]
  - CEREBROVASCULAR ACCIDENT [None]
  - DRUG INTERACTION [None]
